FAERS Safety Report 24659256 (Version 2)
Quarter: 2024Q4

REPORT INFORMATION
  Report Type: Spontaneous
  Country: DE (occurrence: DE)
  Receive Date: 20241125
  Receipt Date: 20241209
  Transmission Date: 20250115
  Serious: Yes (Life-Threatening, Hospitalization, Other)
  Sender: CSL BEHRING
  Company Number: DE-BEH-2024186148

PATIENT
  Sex: Female

DRUGS (1)
  1. PRIVIGEN [Suspect]
     Active Substance: HUMAN IMMUNOGLOBULIN G
     Indication: Chronic inflammatory demyelinating polyradiculoneuropathy
     Dosage: 1 G/KG KG (70 G)
     Route: 042
     Dates: start: 202406

REACTIONS (6)
  - Pulmonary embolism [Not Recovered/Not Resolved]
  - Hyperdynamic left ventricle [Unknown]
  - Pulmonary artery thrombosis [Unknown]
  - Dyspnoea [Unknown]
  - Asthenia [Unknown]
  - Cardiovascular disorder [Unknown]

NARRATIVE: CASE EVENT DATE: 20240101
